FAERS Safety Report 7938009-3 (Version None)
Quarter: 2011Q4

REPORT INFORMATION
  Report Type: 
  Country: None (occurrence: None)
  Receive Date: 20111123
  Receipt Date: 20111117
  Transmission Date: 20120403
  Serious: Yes (Hospitalization)
  Sender: FDA-Public Use
  Company Number: TR-US-EMD SERONO, INC.-7096674

PATIENT
  Sex: Male
  Weight: 85 kg

DRUGS (3)
  1. REBIF [Suspect]
     Dates: start: 20110601, end: 20110901
  2. REBIF [Suspect]
     Indication: MULTIPLE SCLEROSIS
     Route: 058
     Dates: start: 20040301, end: 20110601
  3. TAMOL [Concomitant]
     Indication: PAIN
     Route: 048
     Dates: start: 20040301

REACTIONS (1)
  - MYOCARDIAL INFARCTION [None]
